FAERS Safety Report 10185108 (Version 3)
Quarter: 2014Q2

REPORT INFORMATION
  Report Type: Spontaneous
  Country: JP (occurrence: JP)
  Receive Date: 20140521
  Receipt Date: 20140617
  Transmission Date: 20141212
  Serious: Yes (Other)
  Sender: FDA-Public Use
  Company Number: CHNY2013JP001765

PATIENT
  Age: 34 Year
  Sex: Female

DRUGS (4)
  1. MEPTIN [Concomitant]
  2. NICOTINELL TTS 10 [Suspect]
     Indication: SMOKING CESSATION THERAPY
     Route: 062
  3. NICOTINELL TTS 30 [Suspect]
     Indication: SMOKING CESSATION THERAPY
     Dosage: 17.5 MG, QD
     Route: 062
  4. ADOAIR [Concomitant]

REACTIONS (2)
  - Abortion [Unknown]
  - Maternal exposure during pregnancy [Unknown]
